FAERS Safety Report 18816858 (Version 1)
Quarter: 2021Q1

REPORT INFORMATION
  Report Type: Spontaneous
  Country: US (occurrence: US)
  Receive Date: 20210129
  Receipt Date: 20210129
  Transmission Date: 20210419
  Serious: Yes (Life-Threatening, Hospitalization)
  Sender: FDA-Public Use
  Company Number: None

PATIENT
  Age: 54 Year
  Sex: Male
  Weight: 75.3 kg

DRUGS (1)
  1. CYCLOBENZAPRINE (CYCLOBENZAPRINE HCL 10MG TAB) [Suspect]
     Active Substance: CYCLOBENZAPRINE
     Indication: PAIN
     Dosage: OTHER FREQUENCY:PM;?
     Route: 048
     Dates: start: 20170505, end: 20200825

REACTIONS (3)
  - Suicide attempt [None]
  - Intentional product misuse [None]
  - Suicidal ideation [None]

NARRATIVE: CASE EVENT DATE: 20200825
